FAERS Safety Report 5639125-1 (Version None)
Quarter: 2008Q1

REPORT INFORMATION
  Report Type: 
  Country: None (occurrence: None)
  Receive Date: 20080226
  Receipt Date: 20080215
  Transmission Date: 20080703
  Serious: Yes (Hospitalization)
  Sender: FDA-Public Use
  Company Number: KR-ELI_LILLY_AND_COMPANY-KR200802003357

PATIENT
  Sex: Male
  Weight: 29.4 kg

DRUGS (1)
  1. ATOMOXETINE HCL [Suspect]
     Indication: ATTENTION DEFICIT/HYPERACTIVITY DISORDER
     Dosage: 15 MG, 2/D
     Route: 048
     Dates: start: 20080121, end: 20080214

REACTIONS (1)
  - APPENDICITIS [None]
